FAERS Safety Report 9557594 (Version 1)
Quarter: 2013Q3

REPORT INFORMATION
  Report Type: Spontaneous
  Country: US (occurrence: US)
  Receive Date: 20130926
  Receipt Date: 20130926
  Transmission Date: 20140515
  Serious: Yes (Other)
  Sender: FDA-Public Use
  Company Number: US-GLAXOSMITHKLINE-A1042288A

PATIENT
  Sex: Female

DRUGS (1)
  1. PAROXETINE CR [Suspect]
     Dosage: 2TAB PER DAY
     Dates: start: 2002

REACTIONS (2)
  - Drug dependence [Not Recovered/Not Resolved]
  - Drug ineffective [Unknown]
